FAERS Safety Report 7592869-7 (Version None)
Quarter: 2011Q3

REPORT INFORMATION
  Report Type: 
  Country: None (occurrence: None)
  Receive Date: 20110706
  Receipt Date: 20110628
  Transmission Date: 20111222
  Serious: Yes (Hospitalization)
  Sender: FDA-Public Use
  Company Number: TR-GLAXOSMITHKLINE-B0730611A

PATIENT
  Sex: Male

DRUGS (2)
  1. RAMIPRIL [Concomitant]
     Indication: HYPERTENSION
     Dates: start: 20100101
  2. ALLI [Suspect]
     Indication: WEIGHT DECREASED
     Dosage: 1CAP THREE TIMES PER DAY
     Route: 065
     Dates: start: 20110621, end: 20110622

REACTIONS (3)
  - DRUG HYPERSENSITIVITY [None]
  - PRURITUS [None]
  - RASH [None]
